FAERS Safety Report 6837263-9 (Version None)
Quarter: 2010Q3

REPORT INFORMATION
  Report Type: 
  Country: None (occurrence: None)
  Receive Date: 20100713
  Receipt Date: 20070507
  Transmission Date: 20110219
  Serious: No
  Sender: FDA-Public Use
  Company Number: US-PFIZER INC-2007038029

PATIENT
  Sex: Male

DRUGS (3)
  1. CHANTIX [Suspect]
     Dates: start: 20070501
  2. FENTANYL [Interacting]
     Indication: PAIN
  3. OXYCODONE HCL [Interacting]
     Indication: PAIN

REACTIONS (3)
  - DRUG INEFFECTIVE [None]
  - DRUG INTERACTION [None]
  - WITHDRAWAL SYNDROME [None]
